FAERS Safety Report 21308824 (Version 3)
Quarter: 2023Q1

REPORT INFORMATION
  Report Type: Spontaneous
  Country: US (occurrence: US)
  Receive Date: 20220908
  Receipt Date: 20230313
  Transmission Date: 20230417
  Serious: Yes (Hospitalization)
  Sender: FDA-Public Use
  Company Number: US-BIOGEN-2022BI01153050

PATIENT
  Sex: Female

DRUGS (2)
  1. TYSABRI [Suspect]
     Active Substance: NATALIZUMAB
     Indication: Multiple sclerosis
     Route: 050
     Dates: start: 20160914, end: 20180911
  2. TYSABRI [Suspect]
     Active Substance: NATALIZUMAB
     Route: 050
     Dates: start: 20200113, end: 20211029

REACTIONS (6)
  - Loss of consciousness [Recovered/Resolved]
  - Haemorrhage [Unknown]
  - Ulcer [Unknown]
  - Pain [Unknown]
  - Dyskinesia [Unknown]
  - Pain in extremity [Unknown]
